FAERS Safety Report 17710441 (Version 1)
Quarter: 2020Q2

REPORT INFORMATION
  Report Type: Spontaneous
  Country: US (occurrence: US)
  Receive Date: 20200427
  Receipt Date: 20200427
  Transmission Date: 20200714
  Serious: Yes (Hospitalization, Other)
  Sender: FDA-Public Use
  Company Number: US-HIKMA PHARMACEUTICALS USA INC.-US-H14001-20-01962

PATIENT
  Age: 62 Year
  Sex: Male

DRUGS (1)
  1. ACETAZOLAMIDE. [Suspect]
     Active Substance: ACETAZOLAMIDE
     Indication: ACUTE RESPIRATORY FAILURE
     Route: 065

REACTIONS (3)
  - Acidosis [Unknown]
  - Hypercapnia [Unknown]
  - Condition aggravated [Unknown]
